FAERS Safety Report 5626350-9 (Version None)
Quarter: 2008Q1

REPORT INFORMATION
  Report Type: 
  Country: None (occurrence: None)
  Receive Date: 20080214
  Receipt Date: 20080207
  Transmission Date: 20080703
  Serious: Yes (Hospitalization, Other)
  Sender: FDA-Public Use
  Company Number: BR-AVENTIS-200721608GDDC

PATIENT
  Age: 68 Year
  Sex: Female
  Weight: 100 kg

DRUGS (9)
  1. ARAVA [Suspect]
     Dosage: DOSE: 1 TABLET
     Route: 048
     Dates: start: 20071103, end: 20071216
  2. PROPRANOLOL [Concomitant]
     Indication: HYPERTENSION
     Dosage: DOSE: UNK
     Route: 048
  3. ENALAPRIL MALEATE [Concomitant]
     Dosage: DOSE: UNK
     Route: 048
     Dates: end: 20071216
  4. ATENSINA [Concomitant]
     Dosage: DOSE: UNK
     Route: 048
     Dates: end: 20071216
  5. PURAN T4 [Concomitant]
     Dosage: DOSE: UNK
     Route: 048
     Dates: end: 20071216
  6. ISORDIL [Concomitant]
     Dosage: DOSE: UNK
     Route: 048
  7. CLORANA [Concomitant]
     Dosage: DOSE: UNK
     Route: 048
     Dates: end: 20071216
  8. AAS [Concomitant]
     Dosage: DOSE: 2 TABLETS AFTER LUNCH
     Route: 048
     Dates: end: 20071216
  9. CLONIXIN [Concomitant]
     Dosage: DOSE: UNK
     Route: 048
     Dates: end: 20071216

REACTIONS (19)
  - ABDOMINAL PAIN [None]
  - AMNESIA [None]
  - ANGINA UNSTABLE [None]
  - BLINDNESS [None]
  - CEREBROVASCULAR ACCIDENT [None]
  - CHEST PAIN [None]
  - DEPRESSED LEVEL OF CONSCIOUSNESS [None]
  - DIZZINESS [None]
  - EYE PAIN [None]
  - FEELING HOT [None]
  - HEADACHE [None]
  - HYPERHIDROSIS [None]
  - HYPERTENSION [None]
  - MEMORY IMPAIRMENT [None]
  - PNEUMONIA [None]
  - RENAL FAILURE [None]
  - SOMNOLENCE [None]
  - VAGINAL HAEMORRHAGE [None]
  - VOMITING [None]
